FAERS Safety Report 5739875-2 (Version None)
Quarter: 2008Q2

REPORT INFORMATION
  Report Type: 
  Country: None (occurrence: None)
  Receive Date: 20080516
  Receipt Date: 20080505
  Transmission Date: 20081010
  Serious: Yes (Other)
  Sender: FDA-Public Use
  Company Number: US-JNJFOC-20080501413

PATIENT
  Sex: Female
  Weight: 49.9 kg

DRUGS (6)
  1. DURAGESIC-100 [Suspect]
     Dosage: 1 X 100 UG/HR AND 2 X 25 UG/HR
     Route: 062
  2. DURAGESIC-100 [Suspect]
     Indication: PAIN
     Dosage: 1 X 100 UG/HR AND 1 X 25 UG/HR
     Route: 062
  3. FLEXERIL [Concomitant]
     Indication: MUSCLE SPASMS
     Route: 048
  4. LUNESTA [Concomitant]
     Indication: SLEEP DISORDER
     Route: 048
  5. ROZEREM [Concomitant]
     Indication: SLEEP DISORDER
     Route: 048
  6. SEROQUEL [Concomitant]
     Route: 048

REACTIONS (5)
  - DYSPNOEA [None]
  - FEELING ABNORMAL [None]
  - NODULE [None]
  - PHARMACEUTICAL PRODUCT COMPLAINT [None]
  - WITHDRAWAL SYNDROME [None]
